FAERS Safety Report 9158208 (Version 1)
Quarter: 2013Q1

REPORT INFORMATION
  Report Type: Spontaneous
  Country: HU (occurrence: None)
  Receive Date: 20130211
  Receipt Date: 20130211
  Transmission Date: 20140127
  Serious: Yes (Life-Threatening)
  Sender: FDA-Public Use
  Company Number: FK201300329

PATIENT
  Age: 67 Year
  Sex: Female

DRUGS (5)
  1. OXALIPLATIN 5MG/ML CONCENTRATE FOR SOLUTION FOR INFUSION (OXALIPLATIN) [Suspect]
     Indication: COLON CANCER METASTATIC
     Dosage: 134 MG, 1 IN 2 WK, INTRAVENOUS DRIP
     Route: 041
     Dates: start: 20121210, end: 20121210
  2. FLUOROURACIL (FLUOROURACIL) [Concomitant]
  3. MAGNESIUM SULFATE (MAGNESIUM SULFATE) [Concomitant]
  4. CALCIMUSC (CALCIUM GLUCONATE) (CALCIUM GLUCONATE) [Concomitant]
  5. LEUCOVORIN (CALCIUM FOLINATE) (CALCIUM FOLLINATE) [Concomitant]

REACTIONS (3)
  - Hypersensitivity [None]
  - Cyanosis [None]
  - Infusion related reaction [None]
